FAERS Safety Report 19988333 (Version 10)
Quarter: 2022Q2

REPORT INFORMATION
  Report Type: Report from Study
  Country: CL (occurrence: CL)
  Receive Date: 20211022
  Receipt Date: 20220517
  Transmission Date: 20220720
  Serious: Yes (Death, Life-Threatening, Hospitalization)
  Sender: FDA-Public Use
  Company Number: CL-SA-SAC20211018001469

PATIENT
  Age: 54 Year
  Sex: Male

DRUGS (9)
  1. CEMIPLIMAB [Suspect]
     Active Substance: CEMIPLIMAB
     Indication: Malignant melanoma
     Dosage: 350 UG, Q3W, INFUSION RATE : 700 MG/H
     Route: 041
     Dates: start: 20210921, end: 20210921
  2. THOR-707 [Suspect]
     Active Substance: THOR-707
     Indication: Malignant melanoma
     Dosage: 2302 UG, Q3W; INFUSION RATE OF 4,064 MG/H
     Route: 041
     Dates: start: 20210921, end: 20210921
  3. LOSARTAN [Concomitant]
     Active Substance: LOSARTAN
     Indication: Product used for unknown indication
     Dosage: UNK
     Route: 048
     Dates: start: 2015, end: 20211023
  4. METFORMINE                         /00082701/ [Concomitant]
     Indication: Product used for unknown indication
     Dosage: UNK
     Route: 048
     Dates: start: 2015
  5. GLYBURIDE [Concomitant]
     Active Substance: GLYBURIDE
     Indication: Product used for unknown indication
     Dosage: UNK
     Route: 048
     Dates: start: 2015
  6. OMEPRAZOLE [Concomitant]
     Active Substance: OMEPRAZOLE
     Indication: Prophylaxis
     Dosage: UNK
     Route: 042
     Dates: start: 20211014, end: 20211014
  7. ONDANSETRON [Concomitant]
     Active Substance: ONDANSETRON
     Indication: Product used for unknown indication
     Dosage: UNK
     Route: 042
     Dates: start: 20211014, end: 20211014
  8. ENOXAPARIN [Concomitant]
     Active Substance: ENOXAPARIN
     Indication: Product used for unknown indication
     Dosage: UNK
     Route: 058
     Dates: start: 20211014, end: 20211014
  9. ACETAMINOPHEN [Concomitant]
     Active Substance: ACETAMINOPHEN
     Indication: Product used for unknown indication
     Dosage: UNK
     Route: 042
     Dates: start: 20211014, end: 20211014

REACTIONS (2)
  - Myositis [Not Recovered/Not Resolved]
  - Immune-mediated myocarditis [Fatal]

NARRATIVE: CASE EVENT DATE: 20211012
